FAERS Safety Report 5843336-X (Version None)
Quarter: 2008Q3

REPORT INFORMATION
  Report Type: 
  Country: None (occurrence: None)
  Receive Date: 20080808
  Receipt Date: 20080730
  Transmission Date: 20090109
  Serious: Yes (Disabling)
  Sender: FDA-Public Use
  Company Number: OSCN-NO-0808L-0475

PATIENT
  Age: 66 Year
  Sex: Male

DRUGS (2)
  1. OMNISCAN [Suspect]
     Indication: DRUG USE FOR UNKNOWN INDICATION
     Dosage: NR, SINGLE DOSE, IV
     Route: 042
  2. EPOGEN [Concomitant]

REACTIONS (10)
  - ACTIVITIES OF DAILY LIVING IMPAIRED [None]
  - BIOPSY SKIN ABNORMAL [None]
  - BURNING SENSATION [None]
  - DIALYSIS [None]
  - IMPAIRED HEALING [None]
  - JOINT STIFFNESS [None]
  - PAIN [None]
  - RASH PAPULAR [None]
  - SKIN HYPERTROPHY [None]
  - SKIN ULCER [None]
